FAERS Safety Report 4715361-3 (Version None)
Quarter: 2005Q3

REPORT INFORMATION
  Report Type: 
  Country: None (occurrence: None)
  Receive Date: 20050715
  Receipt Date: 20050310
  Transmission Date: 20060218
  Serious: Yes (Hospitalization, Disabling, Other)
  Sender: FDA-Public Use
  Company Number: US-MERCK-0503USA02021

PATIENT
  Age: 53 Year
  Sex: Male
  Weight: 136 kg

DRUGS (5)
  1. VIOXX [Suspect]
     Indication: OSTEOARTHRITIS
     Route: 048
     Dates: start: 20010801, end: 20030101
  2. VIOXX [Suspect]
     Route: 048
     Dates: start: 20030101, end: 20041014
  3. AMARYL [Concomitant]
     Indication: DIABETES MELLITUS
     Route: 065
  4. LEXAPRO [Concomitant]
     Indication: STRESS
     Route: 065
     Dates: end: 20000101
  5. ASPIRIN [Concomitant]
     Route: 065

REACTIONS (27)
  - ANGINA UNSTABLE [None]
  - ARTHROPATHY [None]
  - ATHEROSCLEROSIS [None]
  - CARDIAC FAILURE CONGESTIVE [None]
  - CELLULITIS [None]
  - CHEST DISCOMFORT [None]
  - CHEST PAIN [None]
  - CHONDROMALACIA [None]
  - CHRONIC OBSTRUCTIVE PULMONARY DISEASE [None]
  - CORONARY ARTERY DISEASE [None]
  - ERECTILE DYSFUNCTION [None]
  - HAEMATOMA [None]
  - HYPERLIPIDAEMIA [None]
  - HYPERTENSION [None]
  - INFECTION [None]
  - JOINT EFFUSION [None]
  - LEFT VENTRICULAR FAILURE [None]
  - LIGAMENT INJURY [None]
  - MENISCUS LESION [None]
  - MYOCARDIAL INFARCTION [None]
  - OEDEMA PERIPHERAL [None]
  - PAROTITIS [None]
  - PATELLOFEMORAL PAIN SYNDROME [None]
  - SLEEP APNOEA SYNDROME [None]
  - SYNOVITIS [None]
  - THROAT TIGHTNESS [None]
  - TRACHEOBRONCHITIS [None]
